FAERS Safety Report 5418398-4 (Version None)
Quarter: 2007Q3

REPORT INFORMATION
  Report Type: 
  Country: None (occurrence: None)
  Receive Date: 20070817
  Receipt Date: 20070807
  Transmission Date: 20080115
  Serious: Yes (Hospitalization)
  Sender: FDA-Public Use
  Company Number: US-GENENTECH-243070

PATIENT
  Sex: Female
  Weight: 54.875 kg

DRUGS (2)
  1. AVASTIN [Suspect]
     Indication: MACULAR DEGENERATION
     Dosage: 1.25 MG, Q6W-Q8W
     Route: 031
     Dates: start: 20060515
  2. AVASTIN [Suspect]
     Indication: CHOROIDAL NEOVASCULARISATION

REACTIONS (1)
  - ENDOPHTHALMITIS [None]
